FAERS Safety Report 4541747-6 (Version None)
Quarter: 2004Q4

REPORT INFORMATION
  Report Type: 
  Country: None (occurrence: None)
  Receive Date: 20041230
  Receipt Date: 20041222
  Transmission Date: 20050328
  Serious: Yes (Hospitalization)
  Sender: FDA-Public Use
  Company Number: PHBS2004JP17225

PATIENT
  Age: 29 Year
  Sex: Male

DRUGS (4)
  1. CYTARABINE [Suspect]
     Dosage: 2 MG/M2/D
     Route: 065
  2. METHOTREXATE [Suspect]
     Route: 065
  3. CYCLOPHOSPHAMIDE [Concomitant]
     Dosage: 60 MG/KG/D
     Route: 065
  4. CYCLOSPORINE [Suspect]
     Route: 041

REACTIONS (1)
  - ERYTHEMA [None]
